FAERS Safety Report 4426187-2 (Version None)
Quarter: 2004Q3

REPORT INFORMATION
  Report Type: 
  Country: None (occurrence: None)
  Receive Date: 20040811
  Receipt Date: 20040727
  Transmission Date: 20050211
  Serious: Yes (Hospitalization)
  Sender: FDA-Public Use
  Company Number: 04P-163-0268491-00

PATIENT
  Age: 58 Year
  Sex: Female

DRUGS (4)
  1. VERAPAMIL ER (ISOPTIN SR) (VERAPAMIL) (VERAPAMIL) [Suspect]
  2. TELMISARTAN [Suspect]
     Dosage: 40 MG ; 80 MG
     Dates: end: 20040601
  3. TELMISARTAN [Suspect]
     Dosage: 40 MG ; 80 MG
     Dates: end: 20040601
  4. COZAAR [Suspect]
     Dates: end: 20040601

REACTIONS (7)
  - ASTHENIA [None]
  - BRADYCARDIA [None]
  - ELECTROCARDIOGRAM T WAVE PEAKED [None]
  - HEADACHE [None]
  - HYPERGLYCAEMIA [None]
  - HYPERKALAEMIA [None]
  - SYNCOPE [None]
